FAERS Safety Report 13475708 (Version 2)
Quarter: 2017Q2

REPORT INFORMATION
  Report Type: Spontaneous
  Country: DE (occurrence: DE)
  Receive Date: 20170425
  Receipt Date: 20170523
  Transmission Date: 20170830
  Serious: Yes (Death, Hospitalization)
  Sender: FDA-Public Use
  Company Number: DE-ACTELION-A-CH2017-152565

PATIENT
  Age: 85 Year
  Sex: Female
  Weight: 102 kg

DRUGS (16)
  1. SILDENAFIL. [Suspect]
     Active Substance: SILDENAFIL
     Indication: PULMONARY HYPERTENSION
     Dosage: 20 MG, TID
     Route: 048
     Dates: start: 20170219, end: 20170317
  2. PANTOPRAZOL [Concomitant]
     Active Substance: PANTOPRAZOLE SODIUM
     Dosage: 20 MG, QD
  3. NEBILET [Concomitant]
     Active Substance: NEBIVOLOL
     Dosage: 2.5 MG, QD
  4. XIPAMID [Concomitant]
     Active Substance: XIPAMIDE
     Dosage: 10 MG, QD
  5. OPSUMIT [Suspect]
     Active Substance: MACITENTAN
     Indication: PULMONARY HYPERTENSION
     Dosage: 10 MG, QD
     Route: 048
     Dates: start: 20170219, end: 20170319
  6. BERODUAL [Concomitant]
     Active Substance: FENOTEROL HYDROBROMIDE\IPRATROPIUM BROMIDE
     Dosage: 6 DF, TID
  7. ASPIRIN. [Concomitant]
     Active Substance: ASPIRIN
     Dosage: 100 MG, BID
  8. REVATIO [Concomitant]
     Active Substance: SILDENAFIL CITRATE
     Dosage: 20 MG, TID
  9. LYRICA [Concomitant]
     Active Substance: PREGABALIN
     Dosage: 25 MG, QD
  10. SIMVASTATIN. [Concomitant]
     Active Substance: SIMVASTATIN
     Dosage: 20 MG, QD
  11. TORASEMID [Concomitant]
     Active Substance: TORSEMIDE
     Dosage: 20 MG, BID
  12. KALIUM [Concomitant]
     Active Substance: POTASSIUM CHLORIDE
     Dosage: 15 DF, PRN
  13. OXYGEN. [Concomitant]
     Active Substance: OXYGEN
     Dosage: 6 L/MIN, UNK
  14. SILDENAFIL. [Suspect]
     Active Substance: SILDENAFIL
     Dosage: 20 MG, TID
     Route: 048
     Dates: start: 20160603, end: 20160912
  15. MOVICOL [Concomitant]
     Active Substance: POLYETHYLENE GLYCOL 3350\POTASSIUM CHLORIDE\SODIUM BICARBONATE\SODIUM CHLORIDE
     Dosage: 1 DF, QD
  16. ADENURIC [Concomitant]
     Active Substance: FEBUXOSTAT
     Dosage: 80 MG, QD

REACTIONS (6)
  - Dialysis [Unknown]
  - Respiratory failure [Fatal]
  - Acute kidney injury [Recovering/Resolving]
  - Bradycardia [Fatal]
  - Renal cyst [Unknown]
  - Infection [Fatal]

NARRATIVE: CASE EVENT DATE: 20170319
